FAERS Safety Report 7900739-7 (Version None)
Quarter: 2011Q4

REPORT INFORMATION
  Report Type: 
  Country: None (occurrence: None)
  Receive Date: 20111108
  Receipt Date: 20111025
  Transmission Date: 20120403
  Serious: Yes (Other)
  Sender: FDA-Public Use
  Company Number: US-ELI_LILLY_AND_COMPANY-US201009002862

PATIENT
  Sex: Female

DRUGS (3)
  1. FORTEO [Suspect]
     Indication: OSTEOPOROSIS
     Dosage: UNK, UNKNOWN
  2. FORTEO [Suspect]
     Dosage: UNK, UNKNOWN
  3. FORTEO [Suspect]
     Dosage: UNK, UNKNOWN

REACTIONS (7)
  - FEMUR FRACTURE [None]
  - FAECES PALE [None]
  - DIARRHOEA [None]
  - FALL [None]
  - PAIN IN EXTREMITY [None]
  - PAIN [None]
  - BLOOD PRESSURE DECREASED [None]
